FAERS Safety Report 16675986 (Version 3)
Quarter: 2019Q3

REPORT INFORMATION
  Report Type: Spontaneous
  Country: US (occurrence: US)
  Receive Date: 20190807
  Receipt Date: 20190924
  Transmission Date: 20191004
  Serious: Yes (Hospitalization)
  Sender: FDA-Public Use
  Company Number: US-CELGENEUS-USA-20190704153

PATIENT
  Sex: Female

DRUGS (1)
  1. REVLIMID [Suspect]
     Active Substance: LENALIDOMIDE
     Indication: PLASMA CELL MYELOMA
     Dosage: 10 MILLIGRAM
     Route: 048
     Dates: start: 201906

REACTIONS (6)
  - Peripheral swelling [Unknown]
  - Arthralgia [Unknown]
  - Hip fracture [Unknown]
  - Neutropenia [Unknown]
  - Urinary tract infection [Unknown]
  - Urticaria [Unknown]

NARRATIVE: CASE EVENT DATE: 2019
